FAERS Safety Report 7329601-8 (Version None)
Quarter: 2011Q1

REPORT INFORMATION
  Report Type: 
  Country: None (occurrence: None)
  Receive Date: 20110303
  Receipt Date: 20110216
  Transmission Date: 20110831
  Serious: Yes (Other)
  Sender: FDA-Public Use
  Company Number: PHHY2011JP13043

PATIENT
  Age: 58 Year
  Sex: Male

DRUGS (6)
  1. CICLOSPORIN [Suspect]
     Dosage: UNK
     Route: 065
     Dates: start: 20081001, end: 20090101
  2. CICLOSPORIN [Suspect]
     Indication: MESANGIOPROLIFERATIVE GLOMERULONEPHRITIS
     Dosage: 100 MG, QD
     Route: 065
  3. ADRENAL CORTEX PREPARATIONS [Concomitant]
  4. CYCLOPHOSPHAMIDE [Concomitant]
     Dosage: 50 MG, QD
  5. ACE INHIBITOR NOS [Concomitant]
  6. ANTIPLATELET DRUG [Concomitant]

REACTIONS (4)
  - LEUKOPENIA [None]
  - FOCAL SEGMENTAL GLOMERULOSCLEROSIS [None]
  - URINE ANALYSIS ABNORMAL [None]
  - IMMUNOTACTOID GLOMERULONEPHRITIS [None]
